FAERS Safety Report 8363321-6 (Version None)
Quarter: 2012Q2

REPORT INFORMATION
  Report Type: 
  Country: None (occurrence: None)
  Receive Date: 20120516
  Receipt Date: 20120509
  Transmission Date: 20120825
  Serious: Yes (Hospitalization)
  Sender: FDA-Public Use
  Company Number: CH-SANOFI-AVENTIS-2012SA033342

PATIENT
  Age: 77 Year
  Sex: Female
  Weight: 63 kg

DRUGS (4)
  1. ARAVA [Suspect]
     Indication: POLYARTHRITIS
     Route: 048
     Dates: start: 20110806, end: 20111005
  2. PREDNISONE TAB [Concomitant]
     Indication: POLYARTHRITIS
     Route: 048
     Dates: start: 20110806
  3. PREDNISONE TAB [Concomitant]
  4. HARPAGOPHYTUM PROCUMBENS ROOT [Concomitant]
     Indication: POLYARTHRITIS
     Route: 048
     Dates: start: 20110806

REACTIONS (4)
  - PRURITUS [None]
  - JAUNDICE [None]
  - LIVER INJURY [None]
  - ASTHENIA [None]
